FAERS Safety Report 6356691-1 (Version None)
Quarter: 2009Q3

REPORT INFORMATION
  Report Type: 
  Country: None (occurrence: None)
  Receive Date: 20090914
  Receipt Date: 20090914
  Transmission Date: 20100115
  Serious: No
  Sender: FDA-Public Use
  Company Number: None

PATIENT
  Age: 36 Year
  Sex: Female

DRUGS (1)
  1. DIVALPROEX SODIUM [Suspect]
     Indication: BIPOLAR DISORDER
     Dosage: 500 MG 4 TABS ONCE DAILY ORAL
     Route: 048
     Dates: start: 20090911

REACTIONS (2)
  - DIZZINESS [None]
  - SOMNOLENCE [None]
